FAERS Safety Report 10508517 (Version 1)
Quarter: 2014Q3

REPORT INFORMATION
  Report Type: Spontaneous
  Country: US (occurrence: None)
  Receive Date: 20140915
  Receipt Date: 20140915
  Transmission Date: 20150326
  Serious: Yes (Other)
  Sender: FDA-Public Use
  Company Number: JPI-P-033842

PATIENT
  Age: 20 Year
  Sex: Male

DRUGS (2)
  1. XYREM [Suspect]
     Active Substance: SODIUM OXYBATE
     Indication: NARCOLEPSY
     Route: 048
     Dates: start: 20110104
  2. AMPHETAMINE ASPARTATE; AMPHETAMINE SULFATE; DEXTROAMPHETAMINE SACCHARA [Concomitant]

REACTIONS (8)
  - Back pain [None]
  - Dyspnoea [None]
  - Palpitations [None]
  - Anxiety [None]
  - Abdominal pain upper [None]
  - Drug dependence [None]
  - Insomnia [None]
  - Nausea [None]
